FAERS Safety Report 6765189-8 (Version None)
Quarter: 2010Q2

REPORT INFORMATION
  Report Type: 
  Country: None (occurrence: None)
  Receive Date: 20100610
  Receipt Date: 20100610
  Transmission Date: 20101027
  Serious: Yes (Life-Threatening, Hospitalization, Other)
  Sender: FDA-Public Use
  Company Number: None

PATIENT
  Age: 44 Year
  Sex: Female
  Weight: 86.1834 kg

DRUGS (1)
  1. PROVIGIL [Suspect]
     Indication: ATTENTION DEFICIT/HYPERACTIVITY DISORDER
     Dosage: 200MG 1 -2 DAILY PO
     Route: 048
     Dates: start: 20030120, end: 20080720

REACTIONS (5)
  - ASTHENIA [None]
  - MENTAL DISORDER [None]
  - PRODUCT LABEL ISSUE [None]
  - PRODUCT QUALITY ISSUE [None]
  - SKIN DISORDER [None]
